FAERS Safety Report 5835361-X (Version None)
Quarter: 2008Q3

REPORT INFORMATION
  Report Type: 
  Country: None (occurrence: None)
  Receive Date: 20080806
  Receipt Date: 20080729
  Transmission Date: 20090109
  Serious: Yes (Disabling, Other)
  Sender: FDA-Public Use
  Company Number: FR-BRISTOL-MYERS SQUIBB COMPANY-14283477

PATIENT
  Age: 56 Year
  Sex: Male

DRUGS (3)
  1. AMIKLIN INJ [Suspect]
     Indication: RESPIRATORY DISTRESS
     Dosage: 1.5 G WITHIN 30 MIN ON 23-FEB-06 AND 1 G WITHIN 30 MIN ON 26-FEB-06
     Dates: start: 20060223
  2. TAZOCILLINE [Suspect]
  3. VFEND [Suspect]

REACTIONS (3)
  - DEAFNESS BILATERAL [None]
  - RENAL FAILURE [None]
  - SEPTIC SHOCK [None]
